FAERS Safety Report 18477693 (Version 1)
Quarter: 2020Q4

REPORT INFORMATION
  Report Type: Other
  Country: FR (occurrence: FR)
  Receive Date: 20201108
  Receipt Date: 20201108
  Transmission Date: 20210114
  Serious: Yes (Death)
  Sender: FDA-Public Use
  Company Number: FR-B.BRAUN MEDICAL INC.-2093693

PATIENT
  Age: 82 Year
  Sex: Male

DRUGS (1)
  1. CEFTRIAXONE FOR INJECTION AND DEXTROSE INJECTION 0264-3153-11 (NDA 050 [Suspect]
     Active Substance: CEFTRIAXONE SODIUM
     Indication: PNEUMONIA

REACTIONS (2)
  - Haemolytic anaemia [None]
  - Livedo reticularis [None]
